FAERS Safety Report 25752087 (Version 1)
Quarter: 2025Q3

REPORT INFORMATION
  Report Type: Spontaneous
  Country: GB (occurrence: GB)
  Receive Date: 20250902
  Receipt Date: 20250902
  Transmission Date: 20251020
  Serious: Yes (Other)
  Sender: PFIZER
  Company Number: GB-ROCHE-1248192

PATIENT
  Age: 52 Year
  Sex: Female
  Weight: 64 kg

DRUGS (15)
  1. DOCETAXEL [Suspect]
     Active Substance: DOCETAXEL
     Indication: HER2 positive breast cancer
     Dosage: 170 MG/M2, EVERY 3 WEEKS (DATE OF LAST DOSE PRIOR TO SAE: 07MAY2013)
     Route: 042
     Dates: start: 20130326
  2. DOCETAXEL [Suspect]
     Active Substance: DOCETAXEL
     Dates: start: 20130507
  3. PERTUZUMAB [Suspect]
     Active Substance: PERTUZUMAB
     Dosage: UNK UNK, EVERY 3 WEEKS
     Route: 042
     Dates: start: 20130326
  4. PERTUZUMAB [Suspect]
     Active Substance: PERTUZUMAB
     Dates: start: 20130528, end: 20130701
  5. TRASTUZUMAB [Suspect]
     Active Substance: TRASTUZUMAB
     Indication: HER2 positive breast cancer
     Route: 042
     Dates: start: 20130326, end: 20130326
  6. TRASTUZUMAB [Suspect]
     Active Substance: TRASTUZUMAB
     Dosage: 378 MG, EVERY 3 WEEKS ( LAST DOSE PRIOR TO SAE: 28MAY2013)
     Route: 042
     Dates: start: 20130528, end: 20130701
  7. PLACEBO [Suspect]
     Active Substance: PLACEBO
     Indication: HER2 positive breast cancer
     Route: 042
     Dates: start: 20130326, end: 20130326
  8. PLACEBO [Suspect]
     Active Substance: PLACEBO
     Dosage: UNK, EVERY 3 WEEKS (DATE OF LAST DOSE PRIOR TO SAE: 28MAY2013)
     Route: 042
     Dates: start: 20130528, end: 20130701
  9. ZOPICLONE [Concomitant]
     Active Substance: ZOPICLONE
     Dosage: UNK UNK, DAILY
     Dates: start: 20130507, end: 20130511
  10. CODEINE [Concomitant]
     Active Substance: CODEINE
     Dosage: UNK UNK, DAILY
     Dates: start: 20130507, end: 20130511
  11. DEXAMETHASONE [Concomitant]
     Active Substance: DEXAMETHASONE
     Dosage: UNK UNK, DAILY
     Dates: start: 20130122, end: 20130305
  12. ONDANSETRON [Concomitant]
     Active Substance: ONDANSETRON
     Dosage: UNK UNK, DAILY
     Dates: start: 20130122, end: 20130305
  13. LANSOPRAZOLE [Concomitant]
     Active Substance: LANSOPRAZOLE
     Dosage: UNK UNK, DAILY
     Dates: start: 20130416, end: 20130625
  14. CYCLIZINE [Concomitant]
     Active Substance: CYCLIZINE
     Dosage: UNK UNK, DAILY
     Dates: start: 20130304, end: 20130531
  15. ENALAPRIL [Concomitant]
     Active Substance: ENALAPRIL
     Dates: start: 20130605, end: 20130914

REACTIONS (1)
  - Ejection fraction decreased [Recovered/Resolved]

NARRATIVE: CASE EVENT DATE: 20130603
